FAERS Safety Report 8494297-9 (Version None)
Quarter: 2012Q3

REPORT INFORMATION
  Report Type: 
  Country: None (occurrence: None)
  Receive Date: 20120709
  Receipt Date: 20120627
  Transmission Date: 20120928
  Serious: Yes (Other)
  Sender: FDA-Public Use
  Company Number: JP-VERTEX PHARMACEUTICALS INC.-AE-2012-009739

PATIENT
  Age: 66 Year
  Sex: Male

DRUGS (3)
  1. PEGINTERFERON ALFA-2B [Concomitant]
     Route: 058
     Dates: start: 20120621, end: 20120624
  2. RIBAVIRIN [Concomitant]
     Route: 048
     Dates: start: 20120621, end: 20120624
  3. TELAVIC (TELAPREVIR) [Suspect]
     Route: 048
     Dates: start: 20120621, end: 20120624

REACTIONS (3)
  - BLOOD URIC ACID INCREASED [None]
  - BLOOD CREATININE INCREASED [None]
  - RENAL IMPAIRMENT [None]
